FAERS Safety Report 13068007 (Version 4)
Quarter: 2018Q3

REPORT INFORMATION
  Report Type: Spontaneous
  Country: CA (occurrence: CA)
  Receive Date: 20161228
  Receipt Date: 20180719
  Transmission Date: 20181010
  Serious: Yes (Other)
  Sender: FDA-Public Use
  Company Number: CA-ROCHE-1872160

PATIENT
  Age: 37 Year
  Sex: Male

DRUGS (23)
  1. XOLAIR [Suspect]
     Active Substance: OMALIZUMAB
     Dosage: 150 MG, EVERY 3 WEEKS
     Route: 058
     Dates: start: 20150525
  2. XOLAIR [Suspect]
     Active Substance: OMALIZUMAB
     Dosage: UNK
     Route: 058
     Dates: start: 20131101
  3. XOLAIR [Suspect]
     Active Substance: OMALIZUMAB
     Dosage: UNK
     Route: 058
     Dates: start: 20141017
  4. XOLAIR [Suspect]
     Active Substance: OMALIZUMAB
     Route: 058
     Dates: start: 20180608
  5. PREDNISONE. [Concomitant]
     Active Substance: PREDNISONE
     Dosage: UNK
     Route: 065
     Dates: start: 20130201
  6. VENTOLINE [Concomitant]
     Active Substance: ALBUTEROL
     Indication: PRODUCT USED FOR UNKNOWN INDICATION
     Route: 065
  7. XOLAIR [Suspect]
     Active Substance: OMALIZUMAB
     Dosage: UNK
     Route: 058
     Dates: start: 20150615
  8. PULMICORT TURBUHALER [Concomitant]
     Active Substance: BUDESONIDE
  9. XOLAIR [Suspect]
     Active Substance: OMALIZUMAB
     Dosage: UNK
     Route: 058
     Dates: start: 20150112
  10. XOLAIR [Suspect]
     Active Substance: OMALIZUMAB
     Dosage: 150 MG, EVERY 3 WEEKS
     Route: 058
     Dates: start: 20180511
  11. PREDNISONE. [Concomitant]
     Active Substance: PREDNISONE
     Indication: PRODUCT USED FOR UNKNOWN INDICATION
     Dosage: FOR 2 WEEKS
     Route: 065
  12. XOLAIR [Suspect]
     Active Substance: OMALIZUMAB
     Dosage: UNK
     Route: 058
     Dates: start: 20130201
  13. XOLAIR [Suspect]
     Active Substance: OMALIZUMAB
     Dosage: UNK
     Route: 058
     Dates: start: 20161128
  14. XOLAIR [Suspect]
     Active Substance: OMALIZUMAB
     Dosage: 150 MG, EVERY 3 WEEKS
     Route: 058
     Dates: start: 20161125
  15. SPIRIVA [Concomitant]
     Active Substance: TIOTROPIUM BROMIDE MONOHYDRATE
     Indication: PRODUCT USED FOR UNKNOWN INDICATION
     Route: 065
  16. XOLAIR [Suspect]
     Active Substance: OMALIZUMAB
     Dosage: 150 MG, EVERY 3 WEEKS
     Route: 058
     Dates: start: 20130920
  17. SYMBICORT [Concomitant]
     Active Substance: BUDESONIDE\FORMOTEROL FUMARATE DIHYDRATE
     Indication: PRODUCT USED FOR UNKNOWN INDICATION
     Route: 065
  18. NASONEX [Concomitant]
     Active Substance: MOMETASONE FUROATE
     Indication: PRODUCT USED FOR UNKNOWN INDICATION
     Route: 065
  19. SALBUTAMOL [Concomitant]
     Active Substance: ALBUTEROL
     Indication: PRODUCT USED FOR UNKNOWN INDICATION
     Route: 065
  20. XOLAIR [Suspect]
     Active Substance: OMALIZUMAB
     Indication: ASTHMA
     Dosage: 150 MG, EVERY 4 WEEKS
     Route: 058
     Dates: start: 20100514
  21. XOLAIR [Suspect]
     Active Substance: OMALIZUMAB
     Dosage: UNK
     Route: 058
     Dates: start: 20140321
  22. XOLAIR [Suspect]
     Active Substance: OMALIZUMAB
     Dosage: UNK
     Route: 058
     Dates: start: 20140815
  23. XOLAIR [Suspect]
     Active Substance: OMALIZUMAB
     Dosage: UNK
     Route: 058
     Dates: start: 20140905

REACTIONS (15)
  - Asthma [Recovered/Resolved]
  - Nasopharyngitis [Recovered/Resolved]
  - Lower respiratory tract congestion [Not Recovered/Not Resolved]
  - Total lung capacity decreased [Unknown]
  - Dyspnoea [Recovered/Resolved]
  - Influenza [Recovered/Resolved]
  - Sputum discoloured [Unknown]
  - Weight decreased [Not Recovered/Not Resolved]
  - Productive cough [Recovered/Resolved]
  - Malaise [Unknown]
  - Wheezing [Recovering/Resolving]
  - Hypoventilation [Recovering/Resolving]
  - Cough [Not Recovered/Not Resolved]
  - Gastroenteritis viral [Not Recovered/Not Resolved]
  - Lower respiratory tract infection [Not Recovered/Not Resolved]

NARRATIVE: CASE EVENT DATE: 20110203
